FAERS Safety Report 14212119 (Version 1)
Quarter: 2017Q4

REPORT INFORMATION
  Report Type: Spontaneous
  Country: US (occurrence: None)
  Receive Date: 20171121
  Receipt Date: 20171121
  Transmission Date: 20180321
  Serious: No
  Sender: FDA-Public Use
  Company Number: None

PATIENT
  Age: 63 Year
  Sex: Male

DRUGS (1)
  1. TEMOZOLOMIDE CAP 100MG [Suspect]
     Active Substance: TEMOZOLOMIDE
     Indication: BRAIN NEOPLASM MALIGNANT
     Dosage: 460MG DAILY X 5 DAYS PO
     Route: 048
     Dates: start: 20170412

REACTIONS (1)
  - Constipation [None]

NARRATIVE: CASE EVENT DATE: 20171118
